FAERS Safety Report 24882214 (Version 1)
Quarter: 2025Q1

REPORT INFORMATION
  Report Type: Report from Study
  Country: US (occurrence: US)
  Receive Date: 20250124
  Receipt Date: 20250124
  Transmission Date: 20250408
  Serious: Yes (Hospitalization)
  Sender: ABBVIE
  Company Number: US-ABBVIE-6079914

PATIENT
  Age: 75 Year
  Sex: Male

DRUGS (1)
  1. VENCLEXTA [Suspect]
     Active Substance: VENETOCLAX
     Indication: Chronic lymphocytic leukaemia
     Route: 048
     Dates: start: 202411

REACTIONS (4)
  - Pleural effusion [Unknown]
  - Dysphagia [Recovered/Resolved with Sequelae]
  - Diarrhoea [Recovered/Resolved]
  - Feeding disorder [Recovered/Resolved with Sequelae]

NARRATIVE: CASE EVENT DATE: 20250118
